FAERS Safety Report 7219038 (Version 5)
Quarter: 2018Q2

REPORT INFORMATION
  Report Type: Spontaneous
  Country: CA (occurrence: CA)
  Receive Date: 20091215
  Receipt Date: 20180514
  Transmission Date: 20180711
  Serious: Yes (Other)
  Sender: FDA-Public Use
  Company Number: CA-ROCHE-674645

PATIENT
  Age: 64 Year
  Sex: Male

DRUGS (5)
  1. BEVACIZUMAB. [Suspect]
     Active Substance: BEVACIZUMAB
     Indication: AGE-RELATED MACULAR DEGENERATION
     Dosage: 13 INJECTIONS IN RIGHT EYE AND 7 INJECTIONS IN LEFT EYE.
     Route: 050
  2. RANIBIZUMAB. [Suspect]
     Active Substance: RANIBIZUMAB
     Indication: AGE-RELATED MACULAR DEGENERATION
     Dosage: 6 INJECTIONS IN LEFT EYE.
     Route: 031
  3. CANDESARTAN. [Concomitant]
     Active Substance: CANDESARTAN
     Indication: HYPERTENSION
     Route: 065
  4. RABEPRAZOLE [Concomitant]
     Active Substance: RABEPRAZOLE
  5. BEVACIZUMAB. [Suspect]
     Active Substance: BEVACIZUMAB
     Route: 031

REACTIONS (6)
  - Dizziness [Recovered/Resolved]
  - IIIrd nerve paralysis [Recovered/Resolved]
  - Confusional state [Recovered/Resolved]
  - Eye movement disorder [Recovered/Resolved]
  - Eyelid ptosis [Recovered/Resolved]
  - IIIrd nerve disorder [Recovered/Resolved]
